FAERS Safety Report 5455095-3 (Version None)
Quarter: 2007Q3

REPORT INFORMATION
  Report Type: 
  Country: None (occurrence: None)
  Receive Date: 20070913
  Receipt Date: 20070913
  Transmission Date: 20080115
  Serious: Yes (Other)
  Sender: FDA-Public Use
  Company Number: None

PATIENT
  Age: 62 Year
  Sex: Female
  Weight: 80.7403 kg

DRUGS (4)
  1. PREDNISONE [Suspect]
     Indication: INFLAMMATION
     Dosage: 2 DAILY PO
     Route: 048
     Dates: start: 20070731, end: 20070731
  2. PREDNISONE [Suspect]
     Indication: RHEUMATOID ARTHRITIS
     Dosage: 2 DAILY PO
     Route: 048
     Dates: start: 20070731, end: 20070731
  3. PREDNISONE [Suspect]
     Indication: INFLAMMATION
     Dosage: 1/2 TO 1 QAM PO
     Route: 048
     Dates: start: 20070826, end: 20070826
  4. PREDNISONE [Suspect]
     Indication: RHEUMATOID ARTHRITIS
     Dosage: 1/2 TO 1 QAM PO
     Route: 048
     Dates: start: 20070826, end: 20070826

REACTIONS (3)
  - DRY SKIN [None]
  - PRURITUS [None]
  - RASH MACULO-PAPULAR [None]
